FAERS Safety Report 22528049 (Version 1)
Quarter: 2023Q2

REPORT INFORMATION
  Report Type: Spontaneous
  Country: CN (occurrence: CN)
  Receive Date: 20230607
  Receipt Date: 20230607
  Transmission Date: 20230722
  Serious: Yes (Hospitalization)
  Sender: FDA-Public Use
  Company Number: CN-TAKEDA-2023TUS054287

PATIENT
  Age: 32 Year
  Sex: Female

DRUGS (8)
  1. LEUPROLIDE ACETATE [Suspect]
     Active Substance: LEUPROLIDE ACETATE
     Indication: Anaemia
     Route: 065
  2. LEUPROLIDE ACETATE [Suspect]
     Active Substance: LEUPROLIDE ACETATE
     Indication: Pain
     Dosage: 11.25 MILLIGRAM, QD
     Route: 058
     Dates: start: 20230316, end: 20230323
  3. LEUPROLIDE ACETATE [Suspect]
     Active Substance: LEUPROLIDE ACETATE
     Indication: Bone cancer
  4. LEUPROLIDE ACETATE [Suspect]
     Active Substance: LEUPROLIDE ACETATE
     Indication: Breast cancer
  5. LEUPROLIDE ACETATE [Suspect]
     Active Substance: LEUPROLIDE ACETATE
     Indication: Metastases to central nervous system
  6. LEUPROLIDE ACETATE [Suspect]
     Active Substance: LEUPROLIDE ACETATE
     Indication: Vomiting
  7. FULVESTRANT [Suspect]
     Active Substance: FULVESTRANT
     Indication: Vomiting
     Dosage: 0.25 GRAM, QD
     Route: 030
     Dates: start: 20230316, end: 20230323
  8. FULVESTRANT [Suspect]
     Active Substance: FULVESTRANT
     Indication: Vomiting
     Route: 065

REACTIONS (1)
  - Myelosuppression [Recovering/Resolving]

NARRATIVE: CASE EVENT DATE: 20230414
